FAERS Safety Report 22101138 (Version 2)
Quarter: 2024Q1

REPORT INFORMATION
  Report Type: Report from Study
  Country: US (occurrence: US)
  Receive Date: 20230316
  Receipt Date: 20240315
  Transmission Date: 20240409
  Serious: No
  Sender: FDA-Public Use
  Company Number: US-ABBVIE-4341374

PATIENT
  Sex: Male

DRUGS (12)
  1. VENCLEXTA [Suspect]
     Active Substance: VENETOCLAX
     Indication: Mantle cell lymphoma
     Dosage: LAST ADMINISTRATION DATE MAR 2023?FORM STRENGTH: 10 MILLIGRAM?WEEK 1
     Route: 048
     Dates: start: 20230303
  2. VENCLEXTA [Suspect]
     Active Substance: VENETOCLAX
     Indication: Mantle cell lymphoma
     Dosage: FIRST AND LAST ADMIN DATE MAR 2023?FORM STRENGTH: 50 MILLIGRAM?WEEK 2
     Route: 048
  3. VENCLEXTA [Suspect]
     Active Substance: VENETOCLAX
     Indication: Mantle cell lymphoma
     Dosage: FORM STRENGTH 100 MG?FIRST AND LAST ADMIN DATE MAR 2023?WEEK 4
     Route: 048
  4. VENCLEXTA [Suspect]
     Active Substance: VENETOCLAX
     Indication: Mantle cell lymphoma
     Dosage: FIRST AND LAST ADMIN DATE MAR 2023?WEEK 3?FORM STRENGTH: 100 MILLIGRAM
     Route: 048
  5. VENCLEXTA [Suspect]
     Active Substance: VENETOCLAX
     Indication: Mantle cell lymphoma
     Dosage: 4 DOSAGE FORM
     Route: 048
  6. DECADRON [Concomitant]
     Active Substance: DEXAMETHASONE
     Indication: Product used for unknown indication
     Dosage: 20 MG DECADRON IN SODIUM CHLORIDE 0.9% 50 ML INFUSION?FREQUENCY TEXT: ONCE
     Route: 042
     Dates: start: 20230308
  7. GAZYVA [Suspect]
     Active Substance: OBINUTUZUMAB
     Indication: Mantle cell lymphoma
     Dosage: ONCE, 100 MG IN 114 ML: INFUSION AT 28.5 ML/ HR OVER 4 HOURS. DO NOT INCREASE INFUSION  RATE
     Route: 042
     Dates: start: 20230308
  8. BRUKINSA [Concomitant]
     Active Substance: ZANUBRUTINIB
     Indication: Product used for unknown indication
     Route: 048
     Dates: start: 20230110
  9. SODIUM CHLORIDE [Concomitant]
     Active Substance: SODIUM CHLORIDE
     Indication: Product used for unknown indication
     Dosage: FORM STRENGTH: 250 MILLILITRE(S)
     Route: 042
     Dates: start: 20230308
  10. LIPITOR [Concomitant]
     Active Substance: ATORVASTATIN CALCIUM
     Indication: Product used for unknown indication
     Dosage: TAKE 1/2 TABLET BY MOUTH ONCE DAILY?FORM STRENGTH: 80 MILLIGRAM
     Route: 048
     Dates: start: 20220817
  11. FLOMAX [Concomitant]
     Active Substance: TAMSULOSIN HYDROCHLORIDE
     Indication: Product used for unknown indication
     Route: 048
     Dates: start: 20221115
  12. ZESTRIL [Concomitant]
     Active Substance: LISINOPRIL
     Indication: Product used for unknown indication
     Route: 048
     Dates: start: 20221115

REACTIONS (2)
  - Off label use [Unknown]
  - Off label use [Unknown]
